FAERS Safety Report 25273573 (Version 2)
Quarter: 2025Q3

REPORT INFORMATION
  Report Type: Spontaneous
  Country: US (occurrence: US)
  Receive Date: 20250506
  Receipt Date: 20250909
  Transmission Date: 20251021
  Serious: No
  Sender: BAYER HEALTHCARE PHARMACEUTICALS INC.
  Company Number: US-BAYER-2025A060293

PATIENT
  Age: 35 Year
  Sex: Female

DRUGS (6)
  1. MIRENA [Suspect]
     Active Substance: LEVONORGESTREL
     Indication: Heavy menstrual bleeding
     Dosage: 20?G/DAY
     Route: 015
     Dates: start: 202402
  2. MIRENA [Suspect]
     Active Substance: LEVONORGESTREL
     Indication: Polymenorrhoea
  3. MIRENA [Suspect]
     Active Substance: LEVONORGESTREL
     Indication: Extraskeletal ossification
  4. SOHONOS [Concomitant]
     Active Substance: PALOVAROTENE
  5. SOHONOS [Concomitant]
     Active Substance: PALOVAROTENE
  6. SOHONOS [Concomitant]
     Active Substance: PALOVAROTENE

REACTIONS (1)
  - Adverse event [Not Recovered/Not Resolved]

NARRATIVE: CASE EVENT DATE: 20250401
